FAERS Safety Report 4283520-2 (Version None)
Quarter: 2004Q1

REPORT INFORMATION
  Report Type: 
  Country: None (occurrence: None)
  Receive Date: 20040120
  Receipt Date: 20030212
  Transmission Date: 20041129
  Serious: No
  Sender: FDA-Public Use
  Company Number: NSADSS2003007475

PATIENT
  Age: 28 Year
  Sex: Female

DRUGS (1)
  1. COPPER T MODEL TCU 380A [Suspect]
     Indication: INTRA-UTERINE CONTRACEPTIVE DEVICE INSERTION
     Dosage: INTRAUTERINE
     Route: 015
     Dates: start: 20010515

REACTIONS (5)
  - ABDOMINAL PAIN [None]
  - ABORTION MISSED [None]
  - DRUG EXPOSURE DURING PREGNANCY [None]
  - IUCD COMPLICATION [None]
  - UNINTENDED PREGNANCY [None]
